FAERS Safety Report 6384565-9 (Version None)
Quarter: 2009Q4

REPORT INFORMATION
  Report Type: 
  Country: None (occurrence: None)
  Receive Date: 20091001
  Receipt Date: 20091001
  Transmission Date: 20100525
  Serious: No
  Sender: FDA-Public Use
  Company Number: US-ROXANE LABORATORIES, INC.-2009-RO-00836RO

PATIENT
  Sex: Female
  Weight: 64 kg

DRUGS (1)
  1. LITHIUM CARBONATE [Suspect]
     Indication: BIPOLAR DISORDER
     Dosage: 1200 MG
     Dates: start: 19880901

REACTIONS (4)
  - DRUG LEVEL BELOW THERAPEUTIC [None]
  - FEELING ABNORMAL [None]
  - MALAISE [None]
  - PRODUCT QUALITY ISSUE [None]
